FAERS Safety Report 9476628 (Version 2)
Quarter: 2015Q2

REPORT INFORMATION
  Report Type: Spontaneous
  Country: JP (occurrence: JP)
  Receive Date: 20130826
  Receipt Date: 20150424
  Transmission Date: 20150821
  Serious: Yes (Hospitalization)
  Sender: FDA-Public Use
  Company Number: PHHY2013JP089871

PATIENT
  Age: 82 Year
  Sex: Male

DRUGS (11)
  1. PITAVASTATIN CALCIUM [Concomitant]
     Active Substance: PITAVASTATIN CALCIUM
     Indication: DYSLIPIDAEMIA
     Dosage: 2 MG, UNK
     Route: 048
  2. BIPHASIC INSULIN [Concomitant]
     Dosage: 38 U, QD
     Route: 065
  3. RABEPRAZOLE SODIUM. [Concomitant]
     Active Substance: RABEPRAZOLE SODIUM
     Indication: PRODUCT USED FOR UNKNOWN INDICATION
     Dosage: 10 MG, UNK
     Route: 048
  4. CANDESARTAN CILEXETIL. [Concomitant]
     Active Substance: CANDESARTAN CILEXETIL
     Indication: HYPERTENSION
     Dosage: 12 MG, UNK
     Route: 048
  5. BIPHASIC INSULIN [Concomitant]
     Dosage: 18 UNITS BEFORE DINNER
     Route: 065
  6. SALAZOSULFAPYRIDINE [Concomitant]
     Active Substance: SULFASALAZINE
     Indication: PRODUCT USED FOR UNKNOWN INDICATION
     Dosage: 1000 MG, UNK
     Route: 048
  7. BIPHASIC INSULIN [Concomitant]
     Indication: TYPE 2 DIABETES MELLITUS
     Dosage: 24 UNITS BEFORE BREAKFAST
     Route: 065
  8. BIPHASIC INSULIN [Concomitant]
     Dosage: 14 UNITS BEFORE LUNCH
     Route: 065
  9. ASPIRIN. [Concomitant]
     Active Substance: ASPIRIN
     Indication: PRODUCT USED FOR UNKNOWN INDICATION
     Dosage: 100 MG, UNK
     Route: 048
  10. PREDNISOLONE. [Suspect]
     Active Substance: PREDNISOLONE
     Indication: RHEUMATOID ARTHRITIS
     Dosage: 2 MG, BID
     Route: 048
  11. CILNIDIPINE [Concomitant]
     Active Substance: CILNIDIPINE
     Indication: PRODUCT USED FOR UNKNOWN INDICATION
     Dosage: 20 MG, UNK
     Route: 048

REACTIONS (2)
  - Glycosylated haemoglobin increased [Recovering/Resolving]
  - Hyperglycaemia [Recovering/Resolving]
